FAERS Safety Report 8206908-3 (Version None)
Quarter: 2012Q1

REPORT INFORMATION
  Report Type: 
  Country: None (occurrence: None)
  Receive Date: 20120314
  Receipt Date: 20120305
  Transmission Date: 20120608
  Serious: Yes (Hospitalization)
  Sender: FDA-Public Use
  Company Number: CA-JNJFOC-20120110814

PATIENT
  Sex: Male
  Weight: 88 kg

DRUGS (2)
  1. REMICADE [Suspect]
     Indication: PSORIASIS
     Dosage: DOSE ALSO REPORTED AS 500 MG ONCE EVERY 6 WEEKS
     Route: 042
     Dates: start: 20100114
  2. REMICADE [Suspect]
     Route: 042

REACTIONS (1)
  - TENDON RUPTURE [None]
